FAERS Safety Report 4679138-X (Version None)
Quarter: 2005Q2

REPORT INFORMATION
  Report Type: 
  Country: None (occurrence: None)
  Receive Date: 20050527
  Receipt Date: 20050131
  Transmission Date: 20051028
  Serious: No
  Sender: FDA-Public Use
  Company Number: PHEH2005US01488

PATIENT
  Age: 56 Year
  Sex: Female

DRUGS (3)
  1. ZELNORM [Suspect]
     Indication: CONSTIPATION
     Dosage: 6 MG, ONCE/SINGLE,ORAL
     Route: 048
     Dates: start: 20041201, end: 20041201
  2. TRICOR [Concomitant]
  3. PANTOPRAZOLE SODIUM [Concomitant]

REACTIONS (1)
  - CONSTIPATION [None]
